FAERS Safety Report 8175054-X (Version None)
Quarter: 2012Q1

REPORT INFORMATION
  Report Type: 
  Country: None (occurrence: None)
  Receive Date: 20120229
  Receipt Date: 20120222
  Transmission Date: 20120608
  Serious: Yes (Hospitalization, Other)
  Sender: FDA-Public Use
  Company Number: PHHY2011CA59535

PATIENT
  Sex: Female

DRUGS (1)
  1. ZOMETA [Suspect]
     Indication: MULTIPLE MYELOMA
     Dosage: 4 MG, EVERY 4 WEEKS
     Route: 042
     Dates: start: 20100915

REACTIONS (8)
  - EAR PAIN [None]
  - GASTROENTERITIS VIRAL [None]
  - APPENDICITIS [None]
  - NASOPHARYNGITIS [None]
  - TYMPANIC MEMBRANE PERFORATION [None]
  - MALAISE [None]
  - COUGH [None]
  - VIRAL INFECTION [None]
